FAERS Safety Report 9693613 (Version 2)
Quarter: 2013Q4

REPORT INFORMATION
  Report Type: Report from Study
  Country: US (occurrence: US)
  Receive Date: 20131118
  Receipt Date: 20131122
  Transmission Date: 20140711
  Serious: Yes (Hospitalization, Other)
  Sender: FDA-Public Use
  Company Number: US-ASTRAZENECA-2013SE83052

PATIENT
  Age: 25909 Day
  Sex: Female
  Weight: 53.5 kg

DRUGS (14)
  1. LISINOPRIL [Suspect]
     Route: 048
  2. AZD0530 CODE NOT BROKEN [Suspect]
     Indication: BREAST CANCER
     Route: 048
     Dates: start: 20130703, end: 20130731
  3. ARIMIDEX [Suspect]
     Route: 048
     Dates: start: 20130703, end: 20130731
  4. LOPRESSOR [Concomitant]
     Dosage: 25 MG
  5. ALLEGRA [Concomitant]
     Dosage: 60 MG
  6. IMMODIUM AD [Concomitant]
     Dosage: 2 MG
  7. K-DUR [Concomitant]
     Dosage: 20 MEQ
  8. KLOR-CON [Concomitant]
     Dosage: 20 MEQ
  9. ZOFRAN ODT [Concomitant]
     Dosage: 8 MG
  10. HYDROCORTISONE [Concomitant]
  11. VITAMIN D3 [Concomitant]
  12. ATIVAN [Concomitant]
     Dosage: 0.5 MG
  13. NORVASC [Concomitant]
     Dosage: 5 MG
  14. ZOCOR [Concomitant]
     Dosage: 40 MG

REACTIONS (3)
  - Atrial fibrillation [Unknown]
  - Rash [Unknown]
  - Dizziness [Unknown]
